FAERS Safety Report 17191785 (Version 1)
Quarter: 2019Q4

REPORT INFORMATION
  Report Type: Spontaneous
  Country: US (occurrence: US)
  Receive Date: 20191202
  Receipt Date: 20191202
  Transmission Date: 20200122
  Serious: Yes (Other)
  Sender: FDA-Public Use
  Company Number: None

PATIENT
  Age: 19 Year
  Sex: Male

DRUGS (1)
  1. VRAYLAR [Suspect]
     Active Substance: CARIPRAZINE
     Indication: BIPOLAR I DISORDER
     Route: 048
     Dates: start: 20190921, end: 20191028

REACTIONS (3)
  - Therapy change [None]
  - Anxiety [None]
  - Mood swings [None]

NARRATIVE: CASE EVENT DATE: 20191028
